FAERS Safety Report 9494668 (Version 2)
Quarter: 2013Q4

REPORT INFORMATION
  Report Type: Report from Study
  Country: US (occurrence: US)
  Receive Date: 20130903
  Receipt Date: 20131010
  Transmission Date: 20140711
  Serious: Yes (Other)
  Sender: FDA-Public Use
  Company Number: US-BAYER-2013-105748

PATIENT
  Age: 43 Year
  Sex: Female

DRUGS (2)
  1. BETASERON [Suspect]
     Indication: PRIMARY PROGRESSIVE MULTIPLE SCLEROSIS
     Dosage: UNK
     Dates: start: 20111101, end: 20130311
  2. BETASERON [Suspect]
     Indication: PRIMARY PROGRESSIVE MULTIPLE SCLEROSIS
     Dosage: 8 MIU, QOD
     Route: 058
     Dates: start: 20130330

REACTIONS (5)
  - Radial nerve palsy [Recovering/Resolving]
  - Arthralgia [Recovering/Resolving]
  - Off label use [None]
  - Fatigue [Not Recovered/Not Resolved]
  - Nausea [Recovered/Resolved]
